FAERS Safety Report 18527774 (Version 1)
Quarter: 2020Q4

REPORT INFORMATION
  Report Type: Spontaneous
  Country: US (occurrence: US)
  Receive Date: 20201120
  Receipt Date: 20201120
  Transmission Date: 20210114
  Serious: No
  Sender: FDA-Public Use
  Company Number: US-TEVA-2020-US-1851546

PATIENT
  Sex: Female

DRUGS (8)
  1. COPAXONE [Suspect]
     Active Substance: GLATIRAMER ACETATE
     Indication: MULTIPLE SCLEROSIS
     Route: 058
     Dates: start: 20171020
  2. TYLENOL [Concomitant]
     Active Substance: ACETAMINOPHEN
  3. FEBUXOSTAT. [Concomitant]
     Active Substance: FEBUXOSTAT
  4. OZEMPIC [Concomitant]
     Active Substance: SEMAGLUTIDE
  5. TRIAMT/HCTZ [Concomitant]
     Active Substance: HYDROCHLOROTHIAZIDE\TRIAMTERENE
  6. HYDROCHLOROT [Concomitant]
     Active Substance: HYDROCHLOROTHIAZIDE
  7. MODAFINIL. [Concomitant]
     Active Substance: MODAFINIL
  8. GLATIRAMER [Concomitant]
     Active Substance: GLATIRAMER

REACTIONS (2)
  - Abdominal pain [Not Recovered/Not Resolved]
  - Back pain [Not Recovered/Not Resolved]
